FAERS Safety Report 6197471-X (Version None)
Quarter: 2009Q2

REPORT INFORMATION
  Report Type: 
  Country: None (occurrence: None)
  Receive Date: 20090521
  Receipt Date: 20090511
  Transmission Date: 20091009
  Serious: Yes (Hospitalization, Other)
  Sender: FDA-Public Use
  Company Number: CA-JNJFOC-20090502353

PATIENT
  Sex: Male
  Weight: 70 kg

DRUGS (1)
  1. REMICADE [Suspect]
     Indication: ANKYLOSING SPONDYLITIS
     Dosage: INFUSIONS SINCE 2006
     Route: 042

REACTIONS (4)
  - FALL [None]
  - PNEUMONIA [None]
  - RIB FRACTURE [None]
  - WRIST FRACTURE [None]
